FAERS Safety Report 16807024 (Version 1)
Quarter: 2019Q3

REPORT INFORMATION
  Report Type: Spontaneous
  Country: FR (occurrence: FR)
  Receive Date: 20190913
  Receipt Date: 20190913
  Transmission Date: 20191005
  Serious: Yes (Hospitalization, Other)
  Sender: FDA-Public Use
  Company Number: FR-GLAXOSMITHKLINE-FR2019165117

PATIENT
  Age: 17 Year
  Sex: Male
  Weight: 79 kg

DRUGS (5)
  1. AMOXICILLINE [Suspect]
     Active Substance: AMOXICILLIN
     Indication: PROPHYLAXIS
     Dosage: UNK
     Route: 065
  2. ACICLOVIR [Suspect]
     Active Substance: ACYCLOVIR
     Indication: PROPHYLAXIS
     Dosage: UNK
     Route: 065
  3. TERCIAN [Suspect]
     Active Substance: CYAMEMAZINE
     Indication: AGITATION
     Dosage: 50 MG, QD
     Route: 048
     Dates: start: 20190808, end: 20190829
  4. ROCEPHINE [Suspect]
     Active Substance: CEFTRIAXONE SODIUM
     Indication: PROPHYLAXIS
     Dosage: 2 G, QD
     Route: 042
  5. RISPERDAL [Suspect]
     Active Substance: RISPERIDONE
     Indication: DELIRIUM
     Dosage: 2 MG, QD
     Route: 048
     Dates: start: 20190821, end: 20190829

REACTIONS (1)
  - Hepatocellular injury [Not Recovered/Not Resolved]

NARRATIVE: CASE EVENT DATE: 20190823
